FAERS Safety Report 8311977 (Version 5)
Quarter: 2018Q3

REPORT INFORMATION
  Report Type: Report from Study
  Country: US (occurrence: US)
  Receive Date: 20111227
  Receipt Date: 20180724
  Transmission Date: 20181010
  Serious: Yes (Hospitalization, Other)
  Sender: FDA-Public Use
  Company Number: US-ROCHE-1024527

PATIENT
  Age: 61 Year
  Sex: Male

DRUGS (9)
  1. VEMURAFENIB. [Suspect]
     Active Substance: VEMURAFENIB
     Indication: POORLY DIFFERENTIATED THYROID CARCINOMA
     Route: 048
     Dates: start: 20110211
  2. XYZAL [Concomitant]
     Active Substance: LEVOCETIRIZINE DIHYDROCHLORIDE
  3. HYDROCORTISONE. [Concomitant]
     Active Substance: HYDROCORTISONE
  4. COBIMETINIB. [Suspect]
     Active Substance: COBIMETINIB
     Indication: POORLY DIFFERENTIATED THYROID CARCINOMA
     Dosage: DAY 1 TO DAY 21
     Route: 048
  5. ATEZOLIZUMAB. [Suspect]
     Active Substance: ATEZOLIZUMAB
     Indication: POORLY DIFFERENTIATED THYROID CARCINOMA
     Dosage: ON DAY 1 AND DAY 15 IN A 28?DAY CYCLE, STARTED ON CYCLE 1, DAY 1
     Route: 042
  6. VEMURAFENIB. [Suspect]
     Active Substance: VEMURAFENIB
     Route: 048
     Dates: start: 20120131, end: 20120306
  7. VEMURAFENIB. [Suspect]
     Active Substance: VEMURAFENIB
     Dosage: DAY 1 TO 21
     Route: 048
  8. TAGAMET [Concomitant]
     Active Substance: CIMETIDINE
  9. CLARINEX [Concomitant]
     Active Substance: DESLORATADINE

REACTIONS (3)
  - Dyspnoea [Unknown]
  - Rash maculo-papular [Recovering/Resolving]
  - Neoplasm progression [Unknown]

NARRATIVE: CASE EVENT DATE: 20120306
